FAERS Safety Report 14265859 (Version 1)
Quarter: 2017Q4

REPORT INFORMATION
  Report Type: Spontaneous
  Country: US (occurrence: US)
  Receive Date: 20171209
  Receipt Date: 20171209
  Transmission Date: 20180321
  Serious: Yes (Other)
  Sender: FDA-Public Use
  Company Number: US-ROCHE-2032479

PATIENT
  Age: 13 Year
  Sex: Male
  Weight: 66.28 kg

DRUGS (3)
  1. QVAR [Concomitant]
     Active Substance: BECLOMETHASONE DIPROPIONATE
     Dosage: UNKNOWN
     Route: 065
  2. ALBUTEROL. [Concomitant]
     Active Substance: ALBUTEROL
     Dosage: UNKNOWN
     Route: 065
  3. PULMOZYME [Suspect]
     Active Substance: DORNASE ALFA
     Indication: CYSTIC FIBROSIS
     Dosage: ONGOING: NO
     Route: 065
     Dates: start: 201705, end: 20171122

REACTIONS (7)
  - Dizziness [Recovered/Resolved]
  - Conjunctivitis [Recovered/Resolved]
  - Hypersensitivity [Not Recovered/Not Resolved]
  - Laryngeal oedema [Not Recovered/Not Resolved]
  - Oropharyngeal pain [Not Recovered/Not Resolved]
  - Lip swelling [Not Recovered/Not Resolved]
  - Contusion [Not Recovered/Not Resolved]

NARRATIVE: CASE EVENT DATE: 201705
